FAERS Safety Report 20749803 (Version 2)
Quarter: 2022Q2

REPORT INFORMATION
  Report Type: Spontaneous
  Country: IT (occurrence: IT)
  Receive Date: 20220426
  Receipt Date: 20220428
  Transmission Date: 20220721
  Serious: Yes (Death, Life-Threatening, Hospitalization)
  Sender: FDA-Public Use
  Company Number: IT-MYLANLABS-2022M1030490

PATIENT

DRUGS (23)
  1. EPINEPHRINE [Suspect]
     Active Substance: EPINEPHRINE
     Indication: Haemorrhage
     Dosage: UNK
     Route: 065
  2. BORTEZOMIB [Suspect]
     Active Substance: BORTEZOMIB
     Indication: B precursor type acute leukaemia
     Dosage: UNK; (TREATMENT PROTOCOL AIEOP2017)
     Route: 065
  3. VINDESINE [Suspect]
     Active Substance: VINDESINE
     Indication: B precursor type acute leukaemia
     Dosage: UNK; (TREATMENT PROTOCOL AIEOP2017)
     Route: 065
  4. VINCRISTINE [Suspect]
     Active Substance: VINCRISTINE
     Indication: B precursor type acute leukaemia
     Dosage: UNK; (TREATMENT PROTOCOL AIEOP2017)
     Route: 065
  5. THIOGUANINE ANHYDROUS [Suspect]
     Active Substance: THIOGUANINE ANHYDROUS
     Indication: B precursor type acute leukaemia
     Dosage: UNK; (TREATMENT PROTOCOL AIEOP2017)
     Route: 065
  6. PREDNISOLONE [Suspect]
     Active Substance: PREDNISOLONE
     Indication: B precursor type acute leukaemia
     Dosage: UNK; (TREATMENT PROTOCOL AIEOP2017)
     Route: 065
  7. PEGASPARGASE [Suspect]
     Active Substance: PEGASPARGASE
     Indication: B precursor type acute leukaemia
     Dosage: UNK; (TREATMENT PROTOCOL AIEOP2017)
     Route: 065
  8. METHOTREXATE [Suspect]
     Active Substance: METHOTREXATE
     Indication: B precursor type acute leukaemia
     Dosage: UNK; (TREATMENT PROTOCOL AIEOP2017)
     Route: 065
  9. MERCAPTOPURINE [Suspect]
     Active Substance: MERCAPTOPURINE
     Indication: B precursor type acute leukaemia
     Dosage: UNK; (TREATMENT PROTOCOL AIEOP2017)
     Route: 065
  10. IFOSFAMIDE [Suspect]
     Active Substance: IFOSFAMIDE
     Indication: B precursor type acute leukaemia
     Dosage: UNK; (TREATMENT PROTOCOL AIEOP2017)
     Route: 065
  11. FLUDARABINE [Suspect]
     Active Substance: FLUDARABINE PHOSPHATE
     Indication: B precursor type acute leukaemia
     Dosage: UNK; (TREATMENT PROTOCOL AIEOP2017)
     Route: 065
  12. ETOPOSIDE [Suspect]
     Active Substance: ETOPOSIDE
     Indication: B precursor type acute leukaemia
     Dosage: UNK; (TREATMENT PROTOCOL AIEOP2017)
     Route: 065
  13. DOXORUBICIN HYDROCHLORIDE [Suspect]
     Active Substance: DOXORUBICIN HYDROCHLORIDE
     Indication: B precursor type acute leukaemia
     Dosage: UNK; (TREATMENT PROTOCOL AIEOP2017)
     Route: 065
  14. DOXORUBICIN [Suspect]
     Active Substance: DOXORUBICIN
     Indication: B precursor type acute leukaemia
     Dosage: UNK; (TREATMENT PROTOCOL AIEOP2017)
     Route: 065
  15. DEXAMETHASONE [Suspect]
     Active Substance: DEXAMETHASONE
     Indication: B precursor type acute leukaemia
     Dosage: UNK; (TREATMENT PROTOCOL AIEOP2017)
     Route: 065
  16. DAUNORUBICIN [Suspect]
     Active Substance: DAUNORUBICIN
     Indication: B precursor type acute leukaemia
     Dosage: UNK; (TREATMENT PROTOCOL AIEOP2017)
     Route: 065
  17. CYTARABINE [Suspect]
     Active Substance: CYTARABINE
     Indication: B precursor type acute leukaemia
     Dosage: UNK; (TREATMENT PROTOCOL AIEOP2017)
     Route: 065
  18. CYCLOPHOSPHAMIDE [Suspect]
     Active Substance: CYCLOPHOSPHAMIDE
     Indication: B precursor type acute leukaemia
     Dosage: UNK; (TREATMENT PROTOCOL AIEOP2017)
     Route: 065
  19. ASPARAGINASE ERWINIA CHRYSANTHEMI [Suspect]
     Active Substance: ASPARAGINASE ERWINIA CHRYSANTHEMI
     Indication: B precursor type acute leukaemia
     Dosage: UNK; (TREATMENT PROTOCOL AIEOP2017)
     Route: 065
  20. BLINATUMOMAB [Suspect]
     Active Substance: BLINATUMOMAB
     Indication: B precursor type acute leukaemia
     Dosage: UNK; (TREATMENT PROTOCOL AIEOP2017)
     Route: 065
  21. SODIUM BICARBONATE [Suspect]
     Active Substance: SODIUM BICARBONATE
     Indication: Haemorrhage
     Dosage: UNK
     Route: 065
  22. PIPERACILLIN AND TAZOBACTAM [Concomitant]
     Active Substance: PIPERACILLIN SODIUM\TAZOBACTAM SODIUM
     Indication: Antibiotic therapy
     Dosage: UNK
     Route: 065
  23. FOSCAVIR [Concomitant]
     Active Substance: FOSCARNET SODIUM
     Indication: Antiviral treatment
     Dosage: UNK
     Route: 065

REACTIONS (5)
  - Haemorrhage [Fatal]
  - Tracheitis [Fatal]
  - Aspergillus infection [Fatal]
  - Tracheal ulcer [Fatal]
  - Drug ineffective [Fatal]
